FAERS Safety Report 9205108 (Version 1)
Quarter: 2013Q2

REPORT INFORMATION
  Report Type: Spontaneous
  Country: US (occurrence: None)
  Receive Date: 20130401
  Receipt Date: 20130401
  Transmission Date: 20140414
  Serious: No
  Sender: FDA-Public Use
  Company Number: None

PATIENT
  Age: 29 Year
  Sex: Female
  Weight: 63.5 kg

DRUGS (2)
  1. VANCOMYCIN [Suspect]
     Indication: CELLULITIS
     Route: 042
     Dates: start: 20130328, end: 20130328
  2. VANCOMYCIN [Suspect]
     Indication: JAW DISORDER
     Route: 042
     Dates: start: 20130328, end: 20130328

REACTIONS (2)
  - Rash [None]
  - Pruritus [None]
